FAERS Safety Report 21304353 (Version 1)
Quarter: 2022Q3

REPORT INFORMATION
  Report Type: Spontaneous
  Country: US (occurrence: None)
  Receive Date: 20220907
  Receipt Date: 20220907
  Transmission Date: 20221027
  Serious: No
  Sender: FDA-Public Use
  Company Number: US-ARIS GLOBAL-202107-1275

PATIENT
  Sex: Female

DRUGS (15)
  1. OXERVATE [Suspect]
     Active Substance: CENEGERMIN-BKBJ
     Indication: Neurotrophic keratopathy
     Route: 047
     Dates: start: 20210720
  2. DEXAMETHASONE/MOXIFLOXACIN [Concomitant]
  3. POTASSIUM GLUCONATE [Concomitant]
     Active Substance: POTASSIUM GLUCONATE
  4. VITAMIN B12 [Concomitant]
     Active Substance: CYANOCOBALAMIN
  5. ESTRADIOL [Concomitant]
     Active Substance: ESTRADIOL
  6. FISH OIL [Concomitant]
     Active Substance: FISH OIL
  7. CINNAMON [Concomitant]
     Active Substance: CINNAMON
  8. VITAMIN D [Concomitant]
     Active Substance: VITAMIN D NOS
  9. GLUCOSAMINE-CHONDROITIN-D3 [Concomitant]
  10. CALTRATE + D3 PLUS [Concomitant]
  11. GABAPENTIN [Concomitant]
     Active Substance: GABAPENTIN
     Dosage: 300 MG/6ML SOLUTION
  12. ESOMEPRAZOLE MAGNESIUM [Concomitant]
     Active Substance: ESOMEPRAZOLE MAGNESIUM
  13. VALTREX [Concomitant]
     Active Substance: VALACYCLOVIR HYDROCHLORIDE
  14. JANUVIA [Concomitant]
     Active Substance: SITAGLIPTIN PHOSPHATE
  15. COSOPT [Concomitant]
     Active Substance: DORZOLAMIDE HYDROCHLORIDE\TIMOLOL MALEATE
     Dosage: 22.3-6.8/1 DROPS

REACTIONS (2)
  - Periorbital pain [Unknown]
  - Vision blurred [Unknown]
